FAERS Safety Report 7947930 (Version 3)
Quarter: 2012Q4

REPORT INFORMATION
  Report Type: Report from Study
  Country: SG (occurrence: SG)
  Receive Date: 20110517
  Receipt Date: 20121017
  Transmission Date: 20130627
  Serious: Yes (Hospitalization)
  Sender: FDA-Public Use
  Company Number: SG-JNJFOC-20110504818

PATIENT
  Age: 79 Year
  Sex: Male
  Weight: 59 kg

DRUGS (4)
  1. ABIRATERONE ACETATE [Suspect]
     Route: 048
  2. ABIRATERONE ACETATE [Suspect]
     Indication: PROSTATE CANCER METASTATIC
     Route: 048
     Dates: start: 20110318, end: 20110505
  3. PREDNISOLONE [Suspect]
     Indication: PROSTATE CANCER METASTATIC
     Route: 048
     Dates: start: 20110318
  4. LUCRIN [Concomitant]
     Indication: HORMONE THERAPY
     Dates: start: 20080623

REACTIONS (1)
  - Dehydration [Recovered/Resolved]
